FAERS Safety Report 6945350-X (Version None)
Quarter: 2010Q3

REPORT INFORMATION
  Report Type: 
  Country: None (occurrence: None)
  Receive Date: 20100827
  Receipt Date: 20100817
  Transmission Date: 20110219
  Serious: Yes (Life-Threatening, Hospitalization, Disabling)
  Sender: FDA-Public Use
  Company Number: US-ROCHE-666897

PATIENT
  Sex: Male
  Weight: 103.8 kg

DRUGS (11)
  1. PEGINTERFERON ALFA-2A [Suspect]
     Dosage: PERMANENTLY DISCONTINUED
     Route: 058
     Dates: start: 20090624, end: 20091030
  2. RIBAVIRIN [Suspect]
     Route: 048
     Dates: start: 20090624
  3. RIBAVIRIN [Suspect]
     Dosage: PERMANENTLY DISCONTINUED
     Route: 048
     Dates: end: 20091030
  4. PIOGLITAZONE [Suspect]
     Dosage: FORM REPORTED AS: PILL.
     Route: 048
     Dates: start: 20090226
  5. PIOGLITAZONE [Suspect]
     Dosage: PERMANENTLY DISCONTINUED
     Route: 048
     Dates: end: 20091030
  6. SIMVASTATIN [Concomitant]
     Dates: start: 20070601
  7. NIFEDIPINE [Concomitant]
     Dosage: DRUG REPORTED AS: NIFEDIPINE XL.
     Dates: start: 20070401
  8. HYDROCHLOROTHIAZIDE [Concomitant]
     Dates: start: 20070401
  9. LISINOPRIL [Concomitant]
     Dates: start: 20070401
  10. SPIRIVA [Concomitant]
     Dosage: DRUG REPORTED AS: SPIRIVA HANDIHALES 18 MG.
     Dates: start: 20070401
  11. METFORMIN [Concomitant]
     Dates: start: 20080601

REACTIONS (1)
  - SPINAL CORD INJURY CERVICAL [None]
